FAERS Safety Report 9254398 (Version 1)
Quarter: 2013Q2

REPORT INFORMATION
  Report Type: Spontaneous
  Country: US (occurrence: None)
  Receive Date: 20130422
  Receipt Date: 20130422
  Transmission Date: 20140414
  Serious: No
  Sender: FDA-Public Use
  Company Number: None

PATIENT
  Age: 58 Year
  Sex: Female

DRUGS (1)
  1. RIBAVIRIN TABLETS 200MG ZYDUS [Suspect]
     Indication: HEPATITIS C
     Route: 048
     Dates: start: 20130304, end: 20130417

REACTIONS (5)
  - Skin irritation [None]
  - Depression [None]
  - Decreased appetite [None]
  - Insomnia [None]
  - Dysgeusia [None]
